APPROVED DRUG PRODUCT: KETOCONAZOLE
Active Ingredient: KETOCONAZOLE
Strength: 2%
Dosage Form/Route: SHAMPOO;TOPICAL
Application: A076419 | Product #001 | TE Code: AB
Applicant: PADAGIS ISRAEL PHARMACEUTICALS LTD
Approved: Jan 7, 2004 | RLD: No | RS: Yes | Type: RX